FAERS Safety Report 4498197-0 (Version None)
Quarter: 2004Q3

REPORT INFORMATION
  Report Type: 
  Country: None (occurrence: None)
  Receive Date: 20040927
  Receipt Date: 20040607
  Transmission Date: 20050211
  Serious: No
  Sender: FDA-Public Use
  Company Number: USA040669417

PATIENT
  Sex: Female

DRUGS (1)
  1. STRATTERA [Suspect]
     Indication: ATTENTION DEFICIT/HYPERACTIVITY DISORDER
     Dosage: 25 MG/ 1 IN THE MORNING
     Dates: start: 20040416, end: 20040514

REACTIONS (3)
  - ABDOMINAL PAIN [None]
  - MENSTRUAL DISORDER [None]
  - STRESS SYMPTOMS [None]
